FAERS Safety Report 8984100 (Version 1)
Quarter: 2012Q4

REPORT INFORMATION
  Report Type: Spontaneous
  Country: US (occurrence: None)
  Receive Date: 20121213
  Receipt Date: 20121213
  Transmission Date: 20130627
  Serious: Yes (Other)
  Sender: FDA-Public Use
  Company Number: 20120747

PATIENT

DRUGS (1)
  1. VENOFER [Suspect]
     Indication: DRUG USE FOR UNKNOWN INDICATION
     Dosage: dose and frquency

REACTIONS (1)
  - Venous thrombosis [None]
